FAERS Safety Report 11034637 (Version 2)
Quarter: 2015Q2

REPORT INFORMATION
  Report Type: Spontaneous
  Country: US (occurrence: US)
  Receive Date: 20150415
  Receipt Date: 20150525
  Transmission Date: 20150821
  Serious: Yes (Other)
  Sender: FDA-Public Use
  Company Number: US-JNJFOC-20130917442

PATIENT
  Sex: Male
  Weight: 76.2 kg

DRUGS (2)
  1. XARELTO [Suspect]
     Active Substance: RIVAROXABAN
     Indication: THROMBOSIS
     Dosage: 20 MG HALF TABLET
     Route: 048
     Dates: start: 201309
  2. XARELTO [Suspect]
     Active Substance: RIVAROXABAN
     Indication: THROMBOSIS
     Route: 048
     Dates: start: 201308, end: 201309

REACTIONS (2)
  - Wound haemorrhage [Recovered/Resolved]
  - Wrong technique in drug usage process [Recovering/Resolving]

NARRATIVE: CASE EVENT DATE: 2013
